FAERS Safety Report 23735051 (Version 1)
Quarter: 2024Q2

REPORT INFORMATION
  Report Type: Spontaneous
  Country: CA (occurrence: CA)
  Receive Date: 20240412
  Receipt Date: 20240412
  Transmission Date: 20240716
  Serious: Yes (Death)
  Sender: FDA-Public Use
  Company Number: CA-SPECGX-T202400884

PATIENT
  Age: 69 Year
  Sex: Male

DRUGS (1)
  1. METHADOSE [Suspect]
     Active Substance: METHADONE HYDROCHLORIDE
     Indication: Product used for unknown indication
     Dosage: 1 MILLILITER
     Route: 065

REACTIONS (5)
  - Accidental death [Fatal]
  - Accidental overdose [Fatal]
  - Confusional state [Fatal]
  - Somnolence [Fatal]
  - Incorrect dose administered [Fatal]
